FAERS Safety Report 7914884-3 (Version None)
Quarter: 2011Q4

REPORT INFORMATION
  Report Type: 
  Country: None (occurrence: None)
  Receive Date: 20111115
  Receipt Date: 20111111
  Transmission Date: 20120403
  Serious: Yes (Life-Threatening)
  Sender: FDA-Public Use
  Company Number: IT-ROCHE-1011905

PATIENT
  Sex: Female

DRUGS (5)
  1. AVASTIN [Suspect]
     Indication: CHEMOTHERAPY
     Route: 042
     Dates: start: 20111014, end: 20111014
  2. CAMPTOSAR [Suspect]
     Indication: CHEMOTHERAPY
     Route: 042
     Dates: start: 20111014, end: 20111014
  3. ALOXI [Concomitant]
     Route: 042
     Dates: start: 20111014, end: 20111014
  4. TAVOR (ITALY) [Concomitant]
     Route: 048
  5. RANIDIL [Concomitant]
     Route: 042

REACTIONS (2)
  - THROAT IRRITATION [None]
  - DYSPHAGIA [None]
